FAERS Safety Report 20495350 (Version 1)
Quarter: 2022Q1

REPORT INFORMATION
  Report Type: Spontaneous
  Country: EG (occurrence: EG)
  Receive Date: 20220221
  Receipt Date: 20220221
  Transmission Date: 20220423
  Serious: Yes (Death)
  Sender: FDA-Public Use
  Company Number: EG-PFIZER INC-202101143034

PATIENT
  Age: 87 Year
  Sex: Female

DRUGS (4)
  1. IBRANCE [Suspect]
     Active Substance: PALBOCICLIB
     Indication: Breast cancer metastatic
     Dosage: 125 MG, CYCLIC (FROM D1 TO D21 THEN ONE WEEK OFF)
     Route: 048
     Dates: end: 20220209
  2. FEMARA [Concomitant]
     Active Substance: LETROZOLE
     Dosage: 1 TABLET, DAILY
  3. XGEVA [Concomitant]
     Active Substance: DENOSUMAB
     Dosage: 1 INJECTION, MONTHLY
     Route: 058
  4. CAL-MAG CITRATE [Concomitant]
     Dosage: 1 TABLET, DAILY

REACTIONS (4)
  - Death [Fatal]
  - Decreased immune responsiveness [Unknown]
  - White blood cell count decreased [Unknown]
  - Dyspnoea [Unknown]
